FAERS Safety Report 17262405 (Version 2)
Quarter: 2020Q2

REPORT INFORMATION
  Report Type: Spontaneous
  Country: US (occurrence: US)
  Receive Date: 20200113
  Receipt Date: 20200501
  Transmission Date: 20200713
  Serious: Yes (Other)
  Sender: FDA-Public Use
  Company Number: US-PFIZER INC-2020011238

PATIENT
  Age: 70 Year
  Sex: Female

DRUGS (2)
  1. LYRICA [Suspect]
     Active Substance: PREGABALIN
     Indication: CERVICAL RADICULOPATHY
     Dosage: UNK
  2. LYRICA [Suspect]
     Active Substance: PREGABALIN
     Dosage: UNK, AS NEEDED (TAKE 1-2 CAPSULE BY MOUTH 2 TIMES DAILY AS NEEDED)
     Route: 048
     Dates: start: 20191219

REACTIONS (2)
  - Malaise [Unknown]
  - Suicidal ideation [Unknown]
